FAERS Safety Report 9106803 (Version 1)
Quarter: 2013Q1

REPORT INFORMATION
  Report Type: Spontaneous
  Country: GB (occurrence: GB)
  Receive Date: 20130220
  Receipt Date: 20130220
  Transmission Date: 20140127
  Serious: Yes (Other)
  Sender: FDA-Public Use
  Company Number: PHFR2012GB006099

PATIENT
  Age: 31 Year
  Sex: Male

DRUGS (8)
  1. CLOZARIL [Suspect]
     Indication: SCHIZOPHRENIA
     Dosage: UNK UKN, UNK
     Route: 048
     Dates: start: 20040428
  2. CLOZARIL [Suspect]
     Indication: SCHIZOPHRENIA
     Dosage: 400 MG,
     Route: 048
     Dates: start: 2009, end: 20121123
  3. VALPROIC ACID [Suspect]
     Indication: MOOD ALTERED
     Dosage: 800 MG, BID
     Route: 048
     Dates: start: 2009
  4. LEVETIRACETAM [Suspect]
     Indication: EPILEPSY
     Dosage: 1000 MG,
     Route: 048
     Dates: start: 2009
  5. LEVETIRACETAM [Suspect]
     Indication: EPILEPSY
  6. LANSOPRAZOLE [Concomitant]
     Indication: PEPTIC ULCER
     Dosage: 60 MG,
     Route: 048
     Dates: start: 2010
  7. SIMVASTATIN [Concomitant]
     Indication: LIPIDS INCREASED
     Dosage: 20 MG,
     Route: 048
     Dates: start: 2011
  8. FYBOGEL [Concomitant]
     Indication: CONSTIPATION
     Route: 048
     Dates: start: 2012

REACTIONS (6)
  - Epilepsy [Recovered/Resolved]
  - White blood cell count decreased [Recovered/Resolved]
  - Neutropenia [Recovered/Resolved]
  - Anaemia [Unknown]
  - Haemoglobin decreased [Recovered/Resolved]
  - Hyperpyrexia [Unknown]
